FAERS Safety Report 6693812-5 (Version None)
Quarter: 2010Q2

REPORT INFORMATION
  Report Type: 
  Country: None (occurrence: None)
  Receive Date: 20100423
  Receipt Date: 20100415
  Transmission Date: 20101027
  Serious: Yes (Death, Other)
  Sender: FDA-Public Use
  Company Number: AU-BRISTOL-MYERS SQUIBB COMPANY-14589170

PATIENT
  Age: 68 Year
  Sex: Female

DRUGS (3)
  1. AMPHOTERICIN B [Suspect]
  2. FLUCYTOSINE [Suspect]
  3. FLUCONAZOLE [Suspect]

REACTIONS (5)
  - ATRIAL FIBRILLATION [None]
  - DEATH [None]
  - HYPOKALAEMIA [None]
  - HYPOMAGNESAEMIA [None]
  - HYPONATRAEMIA [None]
